FAERS Safety Report 22634731 (Version 2)
Quarter: 2023Q2

REPORT INFORMATION
  Report Type: Report from Study
  Country: US (occurrence: US)
  Receive Date: 20230623
  Receipt Date: 20230629
  Transmission Date: 20230721
  Serious: Yes (Hospitalization)
  Sender: FDA-Public Use
  Company Number: US-002147023-NVSC2023US124030

PATIENT
  Age: 49 Year
  Sex: Female

DRUGS (22)
  1. AFINITOR [Suspect]
     Active Substance: EVEROLIMUS
     Indication: Endometrial cancer recurrent
     Dosage: 2.5 MG, QD
     Route: 048
     Dates: start: 20230127, end: 20230517
  2. AFINITOR [Suspect]
     Active Substance: EVEROLIMUS
     Dosage: UNK
     Route: 048
     Dates: start: 20230606
  3. KISQALI [Suspect]
     Active Substance: RIBOCICLIB
     Indication: Endometrial cancer recurrent
     Dosage: 200 MG, QD
     Route: 048
     Dates: start: 20230127, end: 20230517
  4. KISQALI [Suspect]
     Active Substance: RIBOCICLIB
     Dosage: UNK
     Route: 048
     Dates: start: 20230606
  5. FEMARA [Suspect]
     Active Substance: LETROZOLE
     Indication: Endometrial cancer recurrent
     Dosage: 2.5 MG, QD
     Route: 048
     Dates: start: 20230127, end: 20230517
  6. FEMARA [Suspect]
     Active Substance: LETROZOLE
     Dosage: UNK
     Route: 048
     Dates: start: 20230606
  7. FEMARA [Suspect]
     Active Substance: LETROZOLE
     Dosage: UNK
     Route: 048
     Dates: start: 20230614
  8. PENTOXIFYLLINE [Concomitant]
     Active Substance: PENTOXIFYLLINE
     Indication: Product used for unknown indication
     Dosage: 400 MG CR Q 8 HOURS
     Route: 065
     Dates: start: 20230519
  9. LORAZEPAM [Concomitant]
     Active Substance: LORAZEPAM
     Indication: Anxiety
     Dosage: 1 MG, PRN, DAILY
     Route: 065
     Dates: start: 20230406
  10. VENLAFAXINE [Concomitant]
     Active Substance: VENLAFAXINE HYDROCHLORIDE
     Indication: Product used for unknown indication
     Dosage: 75 MG 24 HR
     Route: 065
     Dates: start: 20221014
  11. MAGNESIUM CHLORIDE [Concomitant]
     Active Substance: MAGNESIUM CHLORIDE
     Indication: Product used for unknown indication
     Dosage: 71.5 MG, BID
     Route: 065
     Dates: start: 20230222
  12. PROCHLORPERAZINE [Concomitant]
     Active Substance: PROCHLORPERAZINE
     Indication: Nausea
     Dosage: 10 MG, Q6H,PRN
     Route: 065
     Dates: start: 20230126
  13. PROCHLORPERAZINE [Concomitant]
     Active Substance: PROCHLORPERAZINE
     Indication: Vomiting
  14. METFORMIN [Concomitant]
     Active Substance: METFORMIN HYDROCHLORIDE
     Indication: Type 2 diabetes mellitus
     Dosage: 500 MG 24 HR, DAILY W BREAKFAST
     Route: 065
  15. METFORMIN [Concomitant]
     Active Substance: METFORMIN HYDROCHLORIDE
     Indication: Hyperglycaemia
  16. INSULIN ASPART [Concomitant]
     Active Substance: INSULIN ASPART
     Indication: Product used for unknown indication
     Route: 065
  17. NIACINAMIDE [Concomitant]
     Active Substance: NIACINAMIDE
     Indication: Hyperglycaemia
     Dosage: 100 UNIT/ ML 5-25 UNITES 3 TIMES DIALY BEFORE MEALS
     Route: 065
     Dates: start: 20230125
  18. SEMAGLUTIDE [Concomitant]
     Active Substance: SEMAGLUTIDE
     Indication: Hyperglycaemia
     Dosage: 0.25 MG OR 0.5 MG SQ Q 7
     Route: 065
  19. METOPROLOL SUCCINATE [Concomitant]
     Active Substance: METOPROLOL SUCCINATE
     Indication: Product used for unknown indication
     Dosage: 25 MG,24 HR
     Route: 065
     Dates: start: 20220208
  20. VALSARTAN [Concomitant]
     Active Substance: VALSARTAN
     Indication: Product used for unknown indication
     Dosage: 320 MG, QD
     Route: 065
     Dates: start: 20220208
  21. VITAMIN B12 [Concomitant]
     Active Substance: CYANOCOBALAMIN
     Indication: Product used for unknown indication
     Dosage: 1,000 MCG/ ML INJECTION Q 30 DAYS
     Route: 065
  22. LANTUS [Concomitant]
     Active Substance: INSULIN GLARGINE
     Indication: Hyperglycaemia
     Dosage: 20 UNITS DAILY
     Route: 065
     Dates: start: 20230518

REACTIONS (2)
  - Skin infection [Recovered/Resolved]
  - Pain [Recovered/Resolved]

NARRATIVE: CASE EVENT DATE: 20230517
